FAERS Safety Report 7066573-8 (Version None)
Quarter: 2010Q4

REPORT INFORMATION
  Report Type: 
  Country: None (occurrence: None)
  Receive Date: 20101027
  Receipt Date: 20100715
  Transmission Date: 20110411
  Serious: No
  Sender: FDA-Public Use
  Company Number: US-WYE-H16252610

PATIENT
  Sex: Female
  Weight: 65.83 kg

DRUGS (3)
  1. PREMPRO [Suspect]
     Indication: MENOPAUSE
     Dosage: 0.3MG/1.5MG DAILY
     Route: 048
     Dates: start: 20100709, end: 20100712
  2. IRON [Concomitant]
  3. AMITIZA [Concomitant]

REACTIONS (4)
  - DRUG HYPERSENSITIVITY [None]
  - DRY SKIN [None]
  - PRURITUS [None]
  - RASH [None]
